FAERS Safety Report 7775053-3 (Version None)
Quarter: 2011Q3

REPORT INFORMATION
  Report Type: 
  Country: None (occurrence: None)
  Receive Date: 20110923
  Receipt Date: 20110912
  Transmission Date: 20111222
  Serious: Yes (Other)
  Sender: FDA-Public Use
  Company Number: BR-JNJFOC-20110907085

PATIENT
  Age: 20 Year
  Sex: Male
  Weight: 75 kg

DRUGS (9)
  1. OMEPRAZOLE [Concomitant]
     Indication: PRODUCT USED FOR UNKNOWN INDICATION
     Route: 065
  2. DIAZEPAM [Concomitant]
     Indication: PRODUCT USED FOR UNKNOWN INDICATION
     Route: 065
  3. TRAMADOL HYDROCHLORIDE [Suspect]
     Indication: PRODUCT USED FOR UNKNOWN INDICATION
     Route: 065
  4. ACETAMINOPHEN [Suspect]
     Route: 065
  5. ACETAMINOPHEN [Suspect]
     Indication: PAIN
     Route: 065
     Dates: start: 20110829
  6. MORPHINE [Concomitant]
     Indication: PRODUCT USED FOR UNKNOWN INDICATION
     Route: 065
  7. HALDOL [Suspect]
     Indication: IRRITABILITY
     Dosage: 5 MG
     Route: 065
     Dates: start: 20110822, end: 20110911
  8. DIPYRONE TAB [Suspect]
     Indication: PAIN
     Route: 065
     Dates: start: 20110829
  9. ANTIBIOTICS [Concomitant]
     Indication: PRODUCT USED FOR UNKNOWN INDICATION
     Route: 065

REACTIONS (9)
  - HYPERHIDROSIS [None]
  - INSOMNIA [None]
  - PYREXIA [None]
  - TACHYCARDIA [None]
  - TREMOR [None]
  - DYSPNOEA [None]
  - MUSCLE RIGIDITY [None]
  - HALLUCINATION [None]
  - EXOPHTHALMOS [None]
